FAERS Safety Report 23471899 (Version 2)
Quarter: 2024Q1

REPORT INFORMATION
  Report Type: Spontaneous
  Country: JP (occurrence: JP)
  Receive Date: 20240202
  Receipt Date: 20240216
  Transmission Date: 20240409
  Serious: Yes (Other)
  Sender: FDA-Public Use
  Company Number: JP-AMGEN-JPNSP2023091788

PATIENT
  Age: 67 Year
  Sex: Female

DRUGS (6)
  1. BLINCYTO [Suspect]
     Active Substance: BLINATUMOMAB
     Indication: B precursor type acute leukaemia
     Dosage: 28 MICROGRAM, 24-HOUR CONTINUOUS INTRAVENOUS DRIP INFUSION, CONTINUING
     Route: 042
     Dates: start: 20230509, end: 2023
  2. BLINCYTO [Suspect]
     Active Substance: BLINATUMOMAB
     Dosage: 28 MICROGRAM, 24-HOUR CONTINUOUS INTRAVENOUS DRIP INFUSION, CONTINUING
     Route: 042
     Dates: start: 20230626, end: 2023
  3. BLINCYTO [Suspect]
     Active Substance: BLINATUMOMAB
     Dosage: 28 MICROGRAM, 24-HOUR CONTINUOUS INTRAVENOUS DRIP INFUSION, CONTINUING
     Route: 042
     Dates: start: 20230803, end: 2023
  4. BLINCYTO [Suspect]
     Active Substance: BLINATUMOMAB
     Dosage: 28 MICROGRAM, 24-HOUR CONTINUOUS INTRAVENOUS DRIP INFUSION, CONTINUING
     Route: 042
     Dates: start: 20231102
  5. BLINCYTO [Suspect]
     Active Substance: BLINATUMOMAB
     Dosage: 28 MICROGRAM, 24-HOUR CONTINUOUS INTRAVENOUS DRIP INFUSION, CONTINUING
     Route: 042
     Dates: start: 20240125
  6. PONATINIB [Suspect]
     Active Substance: PONATINIB
     Indication: Product used for unknown indication
     Dosage: 15 MILLIGRAM
     Route: 065

REACTIONS (6)
  - Cytokine release syndrome [Recovered/Resolved]
  - Carotid artery occlusion [Unknown]
  - Peripheral artery occlusion [Unknown]
  - Decreased immune responsiveness [Unknown]
  - Herpes zoster [Not Recovered/Not Resolved]
  - Inappropriate schedule of product administration [Unknown]

NARRATIVE: CASE EVENT DATE: 20230101
